FAERS Safety Report 14569191 (Version 1)
Quarter: 2018Q1

REPORT INFORMATION
  Report Type: Spontaneous
  Country: US (occurrence: US)
  Receive Date: 20180223
  Receipt Date: 20180223
  Transmission Date: 20180509
  Serious: No
  Sender: FDA-Public Use
  Company Number: None

PATIENT
  Age: 55 Year
  Sex: Female

DRUGS (2)
  1. ERIVEDGE [Suspect]
     Active Substance: VISMODEGIB
     Indication: BASAL CELL CARCINOMA
     Route: 048
     Dates: start: 20171214
  2. NO MEDICAITON LIST AVAILABLE [Concomitant]

REACTIONS (3)
  - Ageusia [None]
  - Muscle spasms [None]
  - Vomiting [None]

NARRATIVE: CASE EVENT DATE: 20180222
